APPROVED DRUG PRODUCT: BENZPHETAMINE HYDROCHLORIDE
Active Ingredient: BENZPHETAMINE HYDROCHLORIDE
Strength: 50MG
Dosage Form/Route: TABLET;ORAL
Application: A040773 | Product #001
Applicant: SPECGX LLC
Approved: Apr 25, 2007 | RLD: No | RS: No | Type: DISCN